FAERS Safety Report 9657075 (Version 3)
Quarter: 2013Q4

REPORT INFORMATION
  Report Type: Report from Study
  Country: US (occurrence: US)
  Receive Date: 20131030
  Receipt Date: 20131125
  Transmission Date: 20140711
  Serious: Yes (Hospitalization, Other)
  Sender: FDA-Public Use
  Company Number: US-ACTELION-A-US2013-83891

PATIENT
  Age: 50 Year
  Sex: Female

DRUGS (4)
  1. TRACLEER [Suspect]
     Indication: PULMONARY ARTERIAL HYPERTENSION
     Dosage: 125 MG, BID
     Route: 048
     Dates: start: 201111
  2. VELETRI [Suspect]
     Indication: PULMONARY ARTERIAL HYPERTENSION
     Dosage: 20 NG/KG, PER MIN
     Route: 042
     Dates: start: 20130418
  3. COUMADIN [Concomitant]
  4. ADCIRCA [Concomitant]

REACTIONS (6)
  - Blood glucose increased [Recovering/Resolving]
  - Supraventricular tachycardia [Recovering/Resolving]
  - Chest discomfort [Recovering/Resolving]
  - Cardiac ablation [Unknown]
  - Angina pectoris [Unknown]
  - Nausea [Unknown]
